FAERS Safety Report 10029417 (Version 2)
Quarter: 2014Q1

REPORT INFORMATION
  Report Type: Report from Study
  Country: ES (occurrence: ES)
  Receive Date: 20140322
  Receipt Date: 20140322
  Transmission Date: 20141002
  Serious: Yes (Disabling, Other)
  Sender: FDA-Public Use
  Company Number: PHHY2014ES001969

PATIENT
  Age: 73 Year
  Sex: Female

DRUGS (3)
  1. OSLIF BREEZHALER [Suspect]
     Indication: CHRONIC OBSTRUCTIVE PULMONARY DISEASE
     Dosage: 150 UG, UNK
     Route: 055
     Dates: start: 20131228
  2. TIOTROPIO [Concomitant]
     Indication: CHRONIC OBSTRUCTIVE PULMONARY DISEASE
     Dosage: 18 UG PER DAY
  3. PROPANOLOL [Concomitant]
     Indication: ESSENTIAL TREMOR
     Dosage: 80 MG PER DAY
     Dates: start: 2010

REACTIONS (2)
  - Psychomotor hyperactivity [Unknown]
  - Tremor [Unknown]
